FAERS Safety Report 6056900-2 (Version None)
Quarter: 2009Q1

REPORT INFORMATION
  Report Type: 
  Country: None (occurrence: None)
  Receive Date: 20090129
  Receipt Date: 20090122
  Transmission Date: 20090719
  Serious: Yes (Hospitalization)
  Sender: FDA-Public Use
  Company Number: B0555443A

PATIENT
  Age: 48 Year
  Sex: Male

DRUGS (4)
  1. MODACIN [Suspect]
     Indication: PSEUDOMONAS INFECTION
     Route: 042
  2. TAZOBACTAM [Suspect]
     Indication: PSEUDOMONAS INFECTION
     Route: 042
  3. ISEPAMICIN SULFATE [Suspect]
     Indication: PSEUDOMONAS INFECTION
  4. PIPERACILLIN [Suspect]

REACTIONS (1)
  - SEPTIC EMBOLUS [None]
